FAERS Safety Report 8841156 (Version 6)
Quarter: 2014Q1

REPORT INFORMATION
  Report Type: Spontaneous
  Country: US (occurrence: US)
  Receive Date: 20121015
  Receipt Date: 20140205
  Transmission Date: 20141002
  Serious: Yes (Hospitalization, Disabling, Other)
  Sender: FDA-Public Use
  Company Number: US-009507513-1210USA004462

PATIENT
  Sex: Female
  Weight: 72.56 kg

DRUGS (6)
  1. FOSAMAX [Suspect]
     Indication: OSTEOPOROSIS
     Dosage: 70 MG, QW ON MONDAY
     Route: 048
     Dates: start: 20060213, end: 20070418
  2. ASPIRIN [Concomitant]
     Dosage: 325 MG, QD
     Dates: start: 20011008
  3. VITAMINS (UNSPECIFIED) [Concomitant]
     Dosage: 1 DF, QD
     Dates: start: 20051101
  4. FOLIC ACID [Concomitant]
     Dosage: WITH VITAMINS QD
     Dates: start: 20051101
  5. CALCIUM (UNSPECIFIED) [Concomitant]
     Dosage: 1200 MG, QD
     Dates: start: 20051101
  6. ALENDRONATE SODIUM [Suspect]
     Indication: OSTEOPOROSIS
     Dosage: 70 MG, QW
     Route: 048
     Dates: start: 20080421, end: 20090910

REACTIONS (26)
  - Femur fracture [Recovered/Resolved]
  - Open reduction of fracture [Recovered/Resolved]
  - Low turnover osteopathy [Not Recovered/Not Resolved]
  - Hip arthroplasty [Unknown]
  - Cholecystectomy [Unknown]
  - Osteopenia [Unknown]
  - Plantar fasciitis [Unknown]
  - Fibrocystic breast disease [Unknown]
  - Sacroiliitis [Unknown]
  - Pollakiuria [Unknown]
  - Panic attack [Unknown]
  - Bursitis [Unknown]
  - Allodynia [Unknown]
  - Osteoarthritis [Unknown]
  - Fatigue [Unknown]
  - Drug tolerance decreased [Unknown]
  - Oophorectomy [Unknown]
  - Wrist fracture [Unknown]
  - Muscle rupture [Unknown]
  - Hypoaesthesia [Unknown]
  - Hypercholesterolaemia [Unknown]
  - Hyperventilation [Unknown]
  - Iliotibial band syndrome [Unknown]
  - Joint effusion [Unknown]
  - Drug effect decreased [Unknown]
  - Arthralgia [Not Recovered/Not Resolved]
